FAERS Safety Report 6500991-9 (Version None)
Quarter: 2009Q4

REPORT INFORMATION
  Report Type: 
  Country: None (occurrence: None)
  Receive Date: 20091216
  Receipt Date: 20090518
  Transmission Date: 20100525
  Serious: No
  Sender: FDA-Public Use
  Company Number: A0784949A

PATIENT
  Age: 30 Year
  Sex: Female

DRUGS (3)
  1. COMMIT [Suspect]
     Dates: start: 20090514, end: 20090514
  2. LAMICTAL [Concomitant]
  3. KLONOPIN [Concomitant]

REACTIONS (4)
  - ANXIETY [None]
  - DYSPEPSIA [None]
  - HYPOAESTHESIA [None]
  - OROPHARYNGEAL PAIN [None]
